FAERS Safety Report 18199736 (Version 2)
Quarter: 2021Q4

REPORT INFORMATION
  Report Type: Spontaneous
  Country: US (occurrence: US)
  Receive Date: 20200826
  Receipt Date: 20211213
  Transmission Date: 20220303
  Serious: Yes (Disabling)
  Sender: FDA-Public Use
  Company Number: US-BIOMARINAP-US-2020-131568

PATIENT
  Age: 29 Year

DRUGS (1)
  1. ALDURAZYME [Suspect]
     Active Substance: LARONIDASE
     Indication: Mucopolysaccharidosis I
     Dosage: 58 MILLIGRAM, QW
     Route: 042
     Dates: start: 20180914

REACTIONS (4)
  - Walking aid user [Not Recovered/Not Resolved]
  - Migraine [Unknown]
  - Pain [Not Recovered/Not Resolved]
  - Oxygen therapy [Not Recovered/Not Resolved]
